FAERS Safety Report 12518271 (Version 2)
Quarter: 2016Q3

REPORT INFORMATION
  Report Type: Spontaneous
  Country: IT (occurrence: IT)
  Receive Date: 20160630
  Receipt Date: 20160811
  Transmission Date: 20161109
  Serious: Yes (Other)
  Sender: FDA-Public Use
  Company Number: IT-PFIZER INC-3174284

PATIENT
  Age: 54 Year
  Sex: Female

DRUGS (3)
  1. DOCETAXEL. [Suspect]
     Active Substance: DOCETAXEL
     Dosage: 45 MG, CYCLIC
     Route: 042
     Dates: start: 20160125, end: 20160215
  2. CAPECITABINE. [Suspect]
     Active Substance: CAPECITABINE
     Dosage: 2100 MG, CYCLIC
     Route: 048
     Dates: start: 20160125, end: 20160215
  3. OXALIPLATIN. [Suspect]
     Active Substance: OXALIPLATIN
     Dosage: 105 MG, CYCLIC
     Route: 042
     Dates: start: 20160125, end: 20160215

REACTIONS (5)
  - Pain [Unknown]
  - Palmar-plantar erythrodysaesthesia syndrome [Not Recovered/Not Resolved]
  - Diarrhoea [Not Recovered/Not Resolved]
  - Skin exfoliation [Not Recovered/Not Resolved]
  - Peripheral swelling [Not Recovered/Not Resolved]

NARRATIVE: CASE EVENT DATE: 20160203
